FAERS Safety Report 8310281-X (Version None)
Quarter: 2012Q2

REPORT INFORMATION
  Report Type: 
  Country: None (occurrence: None)
  Receive Date: 20120425
  Receipt Date: 20120418
  Transmission Date: 20120825
  Serious: Yes (Other)
  Sender: FDA-Public Use
  Company Number: US-BAYER-2012-027648

PATIENT
  Age: 55 Year
  Sex: Female

DRUGS (4)
  1. NEXAVAR [Suspect]
     Dosage: 400 MG, QPM
     Route: 048
     Dates: start: 20120409
  2. NEXAVAR [Suspect]
     Dosage: 200 MG, UNK
     Route: 048
  3. NEXAVAR [Suspect]
     Indication: HEPATIC NEOPLASM MALIGNANT
     Dosage: 400 MG, BID(400 MG AM,400 MG PM)
     Route: 048
     Dates: start: 20120317, end: 20120324
  4. ANTIEMETICS AND ANTINAUSEANTS [Concomitant]
     Indication: PROPHYLAXIS OF NAUSEA AND VOMITING

REACTIONS (9)
  - SLOW RESPONSE TO STIMULI [None]
  - PLATELET COUNT DECREASED [None]
  - ASTHENIA [None]
  - EPISTAXIS [None]
  - BLOOD PRESSURE INCREASED [None]
  - MUSCULAR WEAKNESS [None]
  - URINARY INCONTINENCE [None]
  - FATIGUE [None]
  - MOBILITY DECREASED [None]
